FAERS Safety Report 12907014 (Version 2)
Quarter: 2017Q2

REPORT INFORMATION
  Report Type: Spontaneous
  Country: DE (occurrence: DE)
  Receive Date: 20161103
  Receipt Date: 20170407
  Transmission Date: 20170830
  Serious: Yes (Other)
  Sender: FDA-Public Use
  Company Number: DE-OTSUKA-2016_025261

PATIENT
  Age: 51 Year

DRUGS (8)
  1. JINARC [Suspect]
     Active Substance: TOLVAPTAN
     Dosage: 15 MG, QD (EVENING)
     Route: 048
     Dates: start: 20151014, end: 20151202
  2. METOPROLOL SUCCINATE. [Concomitant]
     Active Substance: METOPROLOL SUCCINATE
     Indication: PRODUCT USED FOR UNKNOWN INDICATION
     Dosage: 95 MG, UNK (0.5-0-0.5)
     Route: 065
  3. VALSARTAN. [Concomitant]
     Active Substance: VALSARTAN
     Indication: PRODUCT USED FOR UNKNOWN INDICATION
     Dosage: 320 MG, QD
     Route: 065
     Dates: start: 201510
  4. ALLOPURINOL. [Concomitant]
     Active Substance: ALLOPURINOL
     Indication: PRODUCT USED FOR UNKNOWN INDICATION
     Dosage: 150 MG, QD
     Route: 065
  5. JINARC [Suspect]
     Active Substance: TOLVAPTAN
     Indication: CONGENITAL CYSTIC KIDNEY DISEASE
     Dosage: 45 MG, QD (MORNING)
     Route: 048
     Dates: start: 20151014, end: 20151202
  6. JINARC [Suspect]
     Active Substance: TOLVAPTAN
     Dosage: 30 MG, QD (EVENING)
     Route: 048
     Dates: start: 20151202, end: 201601
  7. AMLODIPINE [Concomitant]
     Active Substance: AMLODIPINE BESYLATE
     Indication: PRODUCT USED FOR UNKNOWN INDICATION
     Dosage: 5 MG, BID
     Route: 065
  8. JINARC [Suspect]
     Active Substance: TOLVAPTAN
     Dosage: 60 MG, QD (MORNING)
     Route: 048
     Dates: start: 20151202, end: 201601

REACTIONS (3)
  - Myocardial infarction [Unknown]
  - Protein urine present [Unknown]
  - Renal impairment [Unknown]

NARRATIVE: CASE EVENT DATE: 201512
